FAERS Safety Report 10216242 (Version 1)
Quarter: 2014Q2

REPORT INFORMATION
  Report Type: Spontaneous
  Country: US (occurrence: None)
  Receive Date: 20140603
  Receipt Date: 20140603
  Transmission Date: 20141212
  Serious: No
  Sender: FDA-Public Use
  Company Number: None

PATIENT
  Age: 21 Year
  Sex: Female
  Weight: 104.33 kg

DRUGS (1)
  1. METFORMIN [Suspect]
     Indication: POLYCYSTIC OVARIES
     Route: 048
     Dates: start: 20140203, end: 20140601

REACTIONS (5)
  - Abasia [None]
  - Panic attack [None]
  - Suicidal ideation [None]
  - Suicide attempt [None]
  - Depression [None]
